FAERS Safety Report 9983957 (Version 1)
Quarter: 2014Q1

REPORT INFORMATION
  Report Type: Report from Study
  Country: US (occurrence: US)
  Receive Date: 20140307
  Receipt Date: 20140307
  Transmission Date: 20141002
  Serious: No
  Sender: FDA-Public Use
  Company Number: US-ABBVIE-13P-163-1184063-00

PATIENT
  Age: 36 Year
  Sex: Female

DRUGS (9)
  1. FISH OIL OMEGA 3 [Concomitant]
     Indication: PRODUCT USED FOR UNKNOWN INDICATION
     Dosage: 1000/300 MG
  2. HUMIRA [Suspect]
     Indication: CROHN^S DISEASE
     Dosage: DAY 1
     Dates: start: 201102, end: 201102
  3. HUMIRA [Suspect]
     Dosage: DAY 15
  4. HUMIRA [Suspect]
     Dates: end: 20131120
  5. HUMIRA [Suspect]
     Dates: start: 20131204
  6. PREDNISONE [Suspect]
     Indication: PRODUCT USED FOR UNKNOWN INDICATION
     Dates: start: 2010, end: 201108
  7. AZATHIOPRINE [Concomitant]
     Indication: CROHN^S DISEASE
  8. ORTHO-CYCLEN [Concomitant]
     Indication: CONTRACEPTION
  9. VITAMIN C [Concomitant]
     Indication: PRODUCT USED FOR UNKNOWN INDICATION

REACTIONS (9)
  - Fatigue [Recovered/Resolved]
  - Blood calcium decreased [Recovered/Resolved]
  - Vitamin D decreased [Recovered/Resolved]
  - Inappropriate schedule of drug administration [Unknown]
  - Injection site bruising [Not Recovered/Not Resolved]
  - Nasopharyngitis [Recovered/Resolved]
  - Injection site pain [Not Recovered/Not Resolved]
  - Alopecia [Recovered/Resolved]
  - Osteopenia [Recovered/Resolved]
